FAERS Safety Report 16213948 (Version 1)
Quarter: 2019Q2

REPORT INFORMATION
  Report Type: Spontaneous
  Country: CA (occurrence: CA)
  Receive Date: 20190418
  Receipt Date: 20190418
  Transmission Date: 20190711
  Serious: No
  Sender: FDA-Public Use
  Company Number: CA-SEBELA IRELAND LIMITED-2018SEB00213

PATIENT
  Sex: Male

DRUGS (2)
  1. AZATHIOPRINE. [Suspect]
     Active Substance: AZATHIOPRINE
     Dosage: UNK
  2. IMURAN [Suspect]
     Active Substance: AZATHIOPRINE
     Dosage: 50 MG, 2X/DAY
     Dates: start: 20171128, end: 20180220

REACTIONS (2)
  - Gastrointestinal disorder [Unknown]
  - Unevaluable event [Unknown]
